FAERS Safety Report 5429052-7 (Version None)
Quarter: 2007Q3

REPORT INFORMATION
  Report Type: 
  Country: None (occurrence: None)
  Receive Date: 20070829
  Receipt Date: 20070403
  Transmission Date: 20080115
  Serious: No
  Sender: FDA-Public Use
  Company Number: A0645793A

PATIENT
  Age: 15 Year
  Sex: Female

DRUGS (3)
  1. MALARONE [Suspect]
     Indication: MALARIA
     Dosage: 1TAB PER DAY
     Route: 048
     Dates: start: 20070324
  2. PEPTO-BISMOL [Concomitant]
  3. ANTACID TAB [Concomitant]

REACTIONS (1)
  - ABDOMINAL PAIN [None]
